FAERS Safety Report 24577383 (Version 1)
Quarter: 2024Q4

REPORT INFORMATION
  Report Type: Spontaneous
  Country: US (occurrence: US)
  Receive Date: 20241104
  Receipt Date: 20241104
  Transmission Date: 20250115
  Serious: No
  Sender: PERRIGO
  Company Number: US-PERRIGO-24US003049

PATIENT
  Weight: 56.689 kg

DRUGS (1)
  1. POLYETHYLENE GLYCOL 3350 [Suspect]
     Active Substance: POLYETHYLENE GLYCOL 3350
     Indication: Colitis ulcerative
     Dosage: 2 TABLESPOONS, QHS
     Route: 048
     Dates: start: 2014, end: 20240323

REACTIONS (3)
  - Off label use [Recovered/Resolved]
  - Incorrect product administration duration [Recovered/Resolved]
  - Foreign body ingestion [Unknown]

NARRATIVE: CASE EVENT DATE: 20140101
